FAERS Safety Report 21158204 (Version 2)
Quarter: 2024Q1

REPORT INFORMATION
  Report Type: Spontaneous
  Country: US (occurrence: US)
  Receive Date: 20220801
  Receipt Date: 20240115
  Transmission Date: 20240409
  Serious: No
  Sender: FDA-Public Use
  Company Number: US-ELI_LILLY_AND_COMPANY-US202207011678

PATIENT
  Age: 42 Year

DRUGS (1)
  1. MOUNJARO [Suspect]
     Active Substance: TIRZEPATIDE
     Indication: Product used for unknown indication
     Dosage: 2.5 MG, MONTHLY (1/M)
     Route: 065

REACTIONS (1)
  - No adverse event [Unknown]
